FAERS Safety Report 10278291 (Version 3)
Quarter: 2014Q3

REPORT INFORMATION
  Report Type: Spontaneous
  Country: US (occurrence: US)
  Receive Date: 20140704
  Receipt Date: 20140911
  Transmission Date: 20150326
  Serious: No
  Sender: FDA-Public Use
  Company Number: US-009507513-1406USA012362

PATIENT
  Sex: Female

DRUGS (1)
  1. NEXPLANON [Suspect]
     Active Substance: ETONOGESTREL
     Indication: CONTRACEPTION
     Dosage: 68 MG, ONE ROD INSERTED EVERY THREE YEARS, UPPER ARM
     Route: 058

REACTIONS (5)
  - Acrochordon [Recovered/Resolved]
  - Implant site reaction [Recovered/Resolved]
  - Device deployment issue [Recovered/Resolved]
  - Implant site scar [Recovered/Resolved]
  - Device difficult to use [Recovered/Resolved]
